FAERS Safety Report 8138111-X (Version None)
Quarter: 2012Q1

REPORT INFORMATION
  Report Type: 
  Country: None (occurrence: None)
  Receive Date: 20120215
  Receipt Date: 20120215
  Transmission Date: 20120608
  Serious: Yes (Hospitalization)
  Sender: FDA-Public Use
  Company Number: None

PATIENT
  Age: 16 Year
  Sex: Female
  Weight: 54.884 kg

DRUGS (1)
  1. MINOCYCLINE HCL [Suspect]
     Indication: ACNE
     Dosage: 100.0 MG
     Route: 048
     Dates: start: 20110610, end: 20110905

REACTIONS (7)
  - AMENORRHOEA [None]
  - BLOOD ZINC DECREASED [None]
  - WEIGHT DECREASED [None]
  - BRADYCARDIA [None]
  - FEELING HOT [None]
  - DIZZINESS [None]
  - EATING DISORDER [None]
